FAERS Safety Report 14091406 (Version 1)
Quarter: 2017Q4

REPORT INFORMATION
  Report Type: Spontaneous
  Country: GB (occurrence: GB)
  Receive Date: 20171016
  Receipt Date: 20171016
  Transmission Date: 20180321
  Serious: Yes (Other)
  Sender: FDA-Public Use
  Company Number: GB-JNJFOC-20171007672

PATIENT
  Age: 24 Month
  Sex: Male

DRUGS (1)
  1. CALPOL [Suspect]
     Active Substance: ACETAMINOPHEN
     Indication: ACCIDENTAL EXPOSURE TO PRODUCT
     Route: 048

REACTIONS (4)
  - Somnolence [Unknown]
  - Failure of child resistant mechanism for pharmaceutical product [Unknown]
  - Accidental overdose [Unknown]
  - Hypophagia [Unknown]
